FAERS Safety Report 7423848-8 (Version None)
Quarter: 2011Q2

REPORT INFORMATION
  Report Type: 
  Country: None (occurrence: None)
  Receive Date: 20110419
  Receipt Date: 20110414
  Transmission Date: 20111010
  Serious: Yes (Hospitalization)
  Sender: FDA-Public Use
  Company Number: PHHO2011DE04962

PATIENT
  Sex: Female
  Weight: 111 kg

DRUGS (4)
  1. FTY [Suspect]
     Dosage: 0.5 MG, QD
     Route: 048
     Dates: start: 20110413
  2. FTY [Suspect]
     Indication: MULTIPLE SCLEROSIS
     Dosage: 0.5MG
     Route: 048
     Dates: start: 20101118, end: 20110327
  3. FTY [Suspect]
     Dosage: NO TREATMENT
     Dates: start: 20110328, end: 20110412
  4. ACETAMINOPHEN [Concomitant]

REACTIONS (3)
  - BILIARY COLIC [None]
  - CHOLELITHIASIS [None]
  - CHEST PAIN [None]
